FAERS Safety Report 9381580 (Version 1)
Quarter: 2013Q3

REPORT INFORMATION
  Report Type: Report from Study
  Country: CA (occurrence: CA)
  Receive Date: 20130703
  Receipt Date: 20130703
  Transmission Date: 20140515
  Serious: Yes (Other)
  Sender: FDA-Public Use
  Company Number: CA-JNJFOC-20130617910

PATIENT
  Sex: Female
  Weight: 84 kg

DRUGS (5)
  1. REMICADE [Suspect]
     Indication: COLITIS ULCERATIVE
     Dosage: FOR 52 WEEKS
     Route: 042
     Dates: start: 200809
  2. PLAQUENIL [Concomitant]
     Dosage: 200 (UNITS UNSPECIFIED)
     Route: 065
  3. ATARAX [Concomitant]
     Dosage: 25 (UNITS UNSPECIFIED)
     Route: 065
  4. TRAZODONE [Concomitant]
     Dosage: 50 UNITS UNSPECIFIED
     Route: 065
  5. SYNTHROID [Concomitant]
     Dosage: 100 (UNITS UNSPECIFIED)
     Route: 065

REACTIONS (1)
  - Paraesthesia [Not Recovered/Not Resolved]
